FAERS Safety Report 8536047-3 (Version None)
Quarter: 2012Q3

REPORT INFORMATION
  Report Type: 
  Country: None (occurrence: None)
  Receive Date: 20120725
  Receipt Date: 20120716
  Transmission Date: 20120928
  Serious: Yes (Other)
  Sender: FDA-Public Use
  Company Number: US-SANOFI-AVENTIS-2012SA050670

PATIENT
  Age: 68 Year
  Sex: Male

DRUGS (4)
  1. PLAVIX [Suspect]
     Indication: STENT PLACEMENT
     Route: 048
     Dates: start: 20090101, end: 20120501
  2. ENALAPRIL MALEATE [Concomitant]
  3. ATORVASTATIN [Concomitant]
  4. PLAVIX [Suspect]
     Route: 048
     Dates: start: 20120501, end: 20120501

REACTIONS (2)
  - ARTHROPATHY [None]
  - CONTUSION [None]
